FAERS Safety Report 20068412 (Version 1)
Quarter: 2021Q4

REPORT INFORMATION
  Report Type: Spontaneous
  Country: US (occurrence: None)
  Receive Date: 20211112
  Receipt Date: 20211112
  Transmission Date: 20220303
  Serious: Yes (Other)
  Sender: FDA-Public Use
  Company Number: None

PATIENT
  Age: 70 Month
  Sex: Female
  Weight: 71.55 kg

DRUGS (5)
  1. LATANOPROST [Suspect]
     Active Substance: LATANOPROST
     Indication: Intraocular pressure increased
     Dosage: OTHER QUANTITY : 1 DROP(S);?FREQUENCY : AT BEDTIME;?
     Route: 047
  2. VITAMIN D [Concomitant]
     Active Substance: VITAMIN D NOS
  3. OMEGA 3 [Concomitant]
     Active Substance: CAPSAICIN
  4. TYLENOL [Concomitant]
     Active Substance: ACETAMINOPHEN
  5. CLARITIN [Concomitant]
     Active Substance: LORATADINE

REACTIONS (10)
  - Ocular hyperaemia [None]
  - Vision blurred [None]
  - Vision blurred [None]
  - Eye pain [None]
  - Headache [None]
  - Migraine [None]
  - Suture related complication [None]
  - Eye injury [None]
  - Cataract operation complication [None]
  - Dry eye [None]

NARRATIVE: CASE EVENT DATE: 20201015
